FAERS Safety Report 5548379-1 (Version None)
Quarter: 2007Q4

REPORT INFORMATION
  Report Type: 
  Country: None (occurrence: None)
  Receive Date: 20071207
  Receipt Date: 20071126
  Transmission Date: 20080405
  Serious: Yes (Hospitalization)
  Sender: FDA-Public Use
  Company Number: 2007-168138-NL

PATIENT
  Age: 85 Year
  Sex: Female

DRUGS (9)
  1. MIRTAZAPINE [Suspect]
     Indication: DEPRESSION
     Dosage: 30 MG; ORAL
     Route: 048
     Dates: start: 20070601, end: 20070820
  2. MIRTAZAPINE [Suspect]
     Indication: DEPRESSION
     Dosage: 30 MG; ORAL
     Route: 048
     Dates: start: 20070823, end: 20070825
  3. CYANOCOBALAMIN [Concomitant]
  4. HEPARIN-FRACTION, SODIUM SALT [Concomitant]
  5. NOLOIIL [Concomitant]
  6. IPRAIROPIUM BROMIDE [Concomitant]
  7. OMEPRAZOLE [Concomitant]
  8. BECLOMEIASONE DIPROPIONAIE [Concomitant]
  9. SALMEIEROL XINAFOAIE [Concomitant]

REACTIONS (1)
  - HYPONATRAEMIA [None]
